FAERS Safety Report 7155927-7 (Version None)
Quarter: 2010Q4

REPORT INFORMATION
  Report Type: 
  Country: None (occurrence: None)
  Receive Date: 20101214
  Receipt Date: 20101129
  Transmission Date: 20110411
  Serious: Yes (Other)
  Sender: FDA-Public Use
  Company Number: US-RANBAXY-2010RR-40235

PATIENT
  Sex: Female

DRUGS (7)
  1. CIPROFLOXACIN [Suspect]
     Indication: ANTIBIOTIC THERAPY
     Dosage: 750 MG, BID
     Route: 048
     Dates: start: 20071217, end: 20071220
  2. CIPROFLOXACIN [Suspect]
     Indication: URINARY TRACT INFECTION
     Dosage: 750 MG, BID
     Route: 048
     Dates: start: 20080204, end: 20080214
  3. CIPROFLOXACIN [Suspect]
     Dosage: 750 MG, BID
     Route: 048
     Dates: start: 20080214, end: 20080222
  4. LEVAQUIN [Suspect]
     Indication: BACTERIAL INFECTION
     Dosage: UNK
     Route: 048
     Dates: start: 20080501
  5. LEVAQUIN [Suspect]
     Indication: DIVERTICULITIS
  6. LEVAQUIN [Suspect]
     Dosage: 750 MG, UNK
     Route: 042
     Dates: start: 20080122, end: 20080130
  7. LEVAQUIN [Suspect]
     Indication: INFECTION
     Dosage: 750 MG, UNK
     Route: 042
     Dates: start: 20080516, end: 20080522

REACTIONS (5)
  - INFUSION SITE PHLEBITIS [None]
  - NAUSEA [None]
  - POST-TRAUMATIC STRESS DISORDER [None]
  - ROTATOR CUFF SYNDROME [None]
  - TENDONITIS [None]
